FAERS Safety Report 9095811 (Version 4)
Quarter: 2013Q1

REPORT INFORMATION
  Report Type: Spontaneous
  Country: JP (occurrence: JP)
  Receive Date: 20130220
  Receipt Date: 20130314
  Transmission Date: 20140127
  Serious: Yes (Life-Threatening, Hospitalization, Other)
  Sender: FDA-Public Use
  Company Number: JP-PFIZER INC-2013007592

PATIENT
  Sex: Female
  Weight: 2.6 kg

DRUGS (7)
  1. CORTRIL [Suspect]
     Indication: SUPPORTIVE CARE
     Dosage: 15 MG, 1X/DAY
     Route: 064
     Dates: start: 199105
  2. CORTRIL [Suspect]
     Indication: ADRENAL INSUFFICIENCY
     Dosage: 15 MG, 1X/DAY
     Route: 063
  3. THYRADIN S [Concomitant]
     Indication: HYPOTHYROIDISM
     Dosage: 125 UG, 1X/DAY
     Route: 064
     Dates: start: 199105
  4. THYRADIN S [Concomitant]
     Dosage: 125 UG, 1X/DAY
     Route: 063
     Dates: start: 199105
  5. DESMOPRESSIN [Concomitant]
     Indication: DIABETES INSIPIDUS
     Dosage: 0.15 ML, 1X/DAY
     Route: 064
     Dates: start: 199105
  6. DESMOPRESSIN [Concomitant]
     Dosage: 0.15 ML, 1X/DAY
     Route: 063
     Dates: start: 199105
  7. NORDITROPIN [Concomitant]
     Indication: GROWTH HORMONE DEFICIENCY
     Dosage: 0.2 MG, 1X/DAY
     Route: 064
     Dates: start: 20110627, end: 201206

REACTIONS (5)
  - Maternal exposure timing unspecified [Recovered/Resolved]
  - Exposure during breast feeding [Recovered/Resolved]
  - Neonatal aspiration [Recovered/Resolved]
  - Neonatal asphyxia [Recovered/Resolved]
  - Neonatal pneumonia [Recovered/Resolved]
